FAERS Safety Report 9257754 (Version 1)
Quarter: 2013Q2

REPORT INFORMATION
  Report Type: Spontaneous
  Country: JP (occurrence: JP)
  Receive Date: 20130426
  Receipt Date: 20130426
  Transmission Date: 20140414
  Serious: Yes (Hospitalization)
  Sender: FDA-Public Use
  Company Number: JP-ASTELLAS-2013JP005428

PATIENT
  Age: 67 Year
  Sex: Male

DRUGS (3)
  1. PROGRAF [Suspect]
     Indication: STILL^S DISEASE ADULT ONSET
     Dosage: 3 MG, UNKNOWN/D
     Route: 065
  2. CORTICOSTEROID NOS [Concomitant]
     Indication: STILL^S DISEASE ADULT ONSET
     Route: 065
  3. METHOTREXATE [Concomitant]
     Indication: STILL^S DISEASE ADULT ONSET
     Dosage: 8 MG, WEEKLY
     Route: 065

REACTIONS (2)
  - Drug ineffective for unapproved indication [Unknown]
  - Still^s disease adult onset [Recovering/Resolving]
